FAERS Safety Report 10168425 (Version 2)
Quarter: 2014Q2

REPORT INFORMATION
  Report Type: Spontaneous
  Country: US (occurrence: US)
  Receive Date: 20140513
  Receipt Date: 20140523
  Transmission Date: 20141212
  Serious: Yes (Hospitalization, Other)
  Sender: FDA-Public Use
  Company Number: 2014SP002524

PATIENT
  Age: 58 Year
  Sex: Female
  Weight: 61.69 kg

DRUGS (18)
  1. OXALIPLATIN [Suspect]
     Indication: COLORECTAL CANCER METASTATIC
     Route: 042
     Dates: start: 20131105, end: 20140218
  2. FOLINIC ACID [Suspect]
     Indication: COLORECTAL CANCER METASTATIC
     Route: 042
     Dates: start: 20131105, end: 20140218
  3. FLUOROURACIL [Suspect]
     Indication: COLORECTAL CANCER METASTATIC
     Dates: start: 20131105, end: 20140220
  4. FLUOROURACIL [Suspect]
     Indication: COLORECTAL CANCER METASTATIC
     Dates: start: 20131105, end: 20140218
  5. AXITINIB [Suspect]
     Indication: COLORECTAL CANCER METASTATIC
     Route: 048
     Dates: start: 20140306
  6. AXITINIB [Suspect]
     Indication: COLORECTAL CANCER METASTATIC
     Route: 048
     Dates: start: 20140409
  7. AXITINIB [Suspect]
     Indication: COLORECTAL CANCER METASTATIC
     Dates: start: 20140420
  8. AXITINIB [Suspect]
     Indication: COLORECTAL CANCER METASTATIC
     Route: 048
     Dates: start: 20140506
  9. BEVACIZUMAB [Suspect]
     Indication: COLORECTAL CANCER METASTATIC
     Route: 042
     Dates: start: 20131105, end: 20140218
  10. AMLODIPINE BESYLATE [Concomitant]
     Indication: HYPERTENSION
     Dates: start: 20140312
  11. CITALOPRAM HYDROCHLORIDE [Concomitant]
     Indication: DEPRESSION
     Dates: start: 20130725
  12. CLONAZEPAM [Concomitant]
     Indication: ANXIETY
     Dates: start: 20091217
  13. LEVOTHYROXINE SODIUM [Concomitant]
     Indication: HYPOTHYROIDISM
     Dates: start: 20140423
  14. LISINOPRIL [Concomitant]
     Indication: HYPERTENSION
     Dates: start: 20140320
  15. HYDROCHLOROTHIAZIDE [Concomitant]
     Indication: HYPERTENSION
     Dates: start: 20140320
  16. ONDANSETRON [Concomitant]
     Indication: NAUSEA
     Dates: start: 20140320
  17. OS-CAL D [Concomitant]
     Dates: start: 20130507
  18. PANTOPRAZOLE SODIUM [Concomitant]
     Indication: DYSPEPSIA
     Dates: start: 20140421

REACTIONS (4)
  - Small intestinal obstruction [Recovered/Resolved]
  - Abdominal pain [Recovered/Resolved]
  - Mucosal inflammation [Unknown]
  - Fatigue [Unknown]
